FAERS Safety Report 17861175 (Version 1)
Quarter: 2020Q2

REPORT INFORMATION
  Report Type: Spontaneous
  Country: US (occurrence: US)
  Receive Date: 20200604
  Receipt Date: 20200604
  Transmission Date: 20200714
  Serious: Yes (Other)
  Sender: FDA-Public Use
  Company Number: US-PFIZER INC-2020216317

PATIENT
  Age: 28 Year
  Sex: Female

DRUGS (14)
  1. FENTANYL CITRATE. [Suspect]
     Active Substance: FENTANYL CITRATE
     Indication: EPIDURAL ANAESTHESIA
     Dosage: 100 UG
     Route: 008
  2. EPINEPHRINE/LIDOCAINE HYDROCHLORIDE [Suspect]
     Active Substance: EPINEPHRINE\LIDOCAINE HYDROCHLORIDE
     Dosage: 5 ML (PH ADJUSTED, 3 MINS LATER, 2.0% LIDOCAINE WITH 1:200,000 EPINEPHRINE)
     Route: 008
  3. OXYTOCIN. [Concomitant]
     Active Substance: OXYTOCIN
     Dosage: UNK
  4. EPINEPHRINE/LIDOCAINE HYDROCHLORIDE [Suspect]
     Active Substance: EPINEPHRINE\LIDOCAINE HYDROCHLORIDE
     Indication: EPIDURAL TEST DOSE
     Dosage: 3 ML( PH ADJUSTED, 2.0% LIDOCAINE WITH 1:200,000 EPINEPHRINE)
     Route: 008
  5. BUPIVACAINE HCL [Suspect]
     Active Substance: BUPIVACAINE HYDROCHLORIDE
     Indication: EPIDURAL ANAESTHESIA
     Dosage: 3 ML (THREE MILLILITERS OF 0.25% BUPIVACAINE)
     Route: 008
  6. BUPIVACAINE HCL [Suspect]
     Active Substance: BUPIVACAINE HYDROCHLORIDE
     Dosage: 6 ML (0.25% WERE INJECTED OVER 6 MIN)
     Route: 008
  7. BUPIVACAINE HCL [Suspect]
     Active Substance: BUPIVACAINE HYDROCHLORIDE
     Dosage: 5 ML (0.5% BUPIVACAINE, 5 ML)
     Route: 008
  8. FENTANYL CITRATE. [Suspect]
     Active Substance: FENTANYL CITRATE
     Dosage: 100 UG
     Route: 008
  9. EPINEPHRINE/LIDOCAINE HYDROCHLORIDE [Suspect]
     Active Substance: EPINEPHRINE\LIDOCAINE HYDROCHLORIDE
     Dosage: 360 MG
     Route: 008
  10. BUPIVACAINE HCL [Suspect]
     Active Substance: BUPIVACAINE HYDROCHLORIDE
     Dosage: 0.0625% AT A RATE OF 10 ML/H
     Route: 008
  11. FENTANYL CITRATE. [Suspect]
     Active Substance: FENTANYL CITRATE
     Dosage: 2 UG/ML AT A RATE OF 10 ML/H
     Route: 008
  12. EPINEPHRINE/LIDOCAINE HYDROCHLORIDE [Suspect]
     Active Substance: EPINEPHRINE\LIDOCAINE HYDROCHLORIDE
     Dosage: 5 ML (PH ADJUSTED, 3 MINS LATER, 2.0% LIDOCAINE WITH 1:200,000 EPINEPHRINE)
     Route: 008
  13. EPINEPHRINE/LIDOCAINE HYDROCHLORIDE [Suspect]
     Active Substance: EPINEPHRINE\LIDOCAINE HYDROCHLORIDE
     Dosage: 100 MG
     Route: 008
  14. EPINEPHRINE/LIDOCAINE HYDROCHLORIDE [Suspect]
     Active Substance: EPINEPHRINE\LIDOCAINE HYDROCHLORIDE
     Dosage: 5 ML (PH ADJUSTED, 3 MINS LATER, 2.0% LIDOCAINE WITH 1:200,000 EPINEPHRINE)
     Route: 008

REACTIONS (1)
  - Generalised tonic-clonic seizure [Recovered/Resolved]
